FAERS Safety Report 6545868-8 (Version None)
Quarter: 2010Q1

REPORT INFORMATION
  Report Type: 
  Country: None (occurrence: None)
  Receive Date: 20100121
  Receipt Date: 20090330
  Transmission Date: 20100710
  Serious: No
  Sender: FDA-Public Use
  Company Number: US-ALLERGAN-0904312US

PATIENT
  Sex: Female

DRUGS (1)
  1. AVAGE CREAM 0.1% [Suspect]
     Indication: DRUG USE FOR UNKNOWN INDICATION
     Dosage: UNK, UNKNOWN
     Route: 061
     Dates: start: 20090301

REACTIONS (2)
  - BURNING SENSATION [None]
  - PAIN [None]
